FAERS Safety Report 9261344 (Version 1)
Quarter: 2013Q2

REPORT INFORMATION
  Report Type: Spontaneous
  Country: US (occurrence: US)
  Receive Date: 20130429
  Receipt Date: 20130429
  Transmission Date: 20140414
  Serious: Yes (Other)
  Sender: FDA-Public Use
  Company Number: US-BAYER-2013-052229

PATIENT
  Age: 38 Year
  Sex: Female

DRUGS (6)
  1. YAZ [Suspect]
  2. GIANVI [Suspect]
  3. SINGULAIR [Concomitant]
     Dosage: 10 MG, QD, EVERY NIGHT
     Dates: start: 20110815
  4. PULMICORT [Concomitant]
     Dosage: UNK UNK, QD
     Dates: start: 20110815
  5. ALLEGRA [Concomitant]
     Dosage: 180 MG, QD
     Dates: start: 20110815
  6. PREVACID [Concomitant]
     Dosage: UNK
     Dates: start: 20110815

REACTIONS (2)
  - Deep vein thrombosis [None]
  - Cholecystitis [None]
